FAERS Safety Report 24785590 (Version 1)
Quarter: 2024Q4

REPORT INFORMATION
  Report Type: Spontaneous
  Country: IE (occurrence: None)
  Receive Date: 20241227
  Receipt Date: 20241227
  Transmission Date: 20250115
  Serious: Yes (Other)
  Sender: Public
  Company Number: None

PATIENT
  Age: 41 Year
  Sex: Male
  Weight: 76.5 kg

DRUGS (4)
  1. VORTIOXETINE [Suspect]
     Active Substance: VORTIOXETINE
     Indication: Depression
     Dosage: 1 TABLET ORAL
     Route: 048
     Dates: start: 20190629, end: 20241219
  2. VORTIOXETINE [Suspect]
     Active Substance: VORTIOXETINE
     Indication: Anxiety
  3. OLANZAPINE [Concomitant]
     Active Substance: OLANZAPINE
  4. Valdoxan 50mg [Concomitant]

REACTIONS (5)
  - Sexual dysfunction [None]
  - Anhedonia [None]
  - Cognitive disorder [None]
  - Therapy cessation [None]
  - Sexual dysfunction [None]

NARRATIVE: CASE EVENT DATE: 20190629
